FAERS Safety Report 14747137 (Version 1)
Quarter: 2018Q2

REPORT INFORMATION
  Report Type: Spontaneous
  Country: US (occurrence: US)
  Receive Date: 20180411
  Receipt Date: 20180411
  Transmission Date: 20180711
  Serious: Yes (Hospitalization, Other)
  Sender: FDA-Public Use
  Company Number: US-ELI_LILLY_AND_COMPANY-US201804001110

PATIENT
  Age: 58 Year
  Sex: Female

DRUGS (5)
  1. HUMULIN 70/30 [Suspect]
     Active Substance: INSULIN HUMAN
     Indication: DIABETES MELLITUS
     Dosage: UNK, UNKNOWN
     Route: 058
  2. HUMALOG [Suspect]
     Active Substance: INSULIN LISPRO
     Dosage: 20 U, PRN (15 TO 20 UNITS THREE TIMES A DAY WITH MEALS- SLIDING SCALE)
     Route: 058
  3. LANTUS [Concomitant]
     Active Substance: INSULIN GLARGINE
     Indication: DIABETES MELLITUS
     Dosage: 30 U, BID
     Route: 065
  4. HUMALOG [Suspect]
     Active Substance: INSULIN LISPRO
     Indication: DIABETES MELLITUS
     Dosage: UNK, UNKNOWN (DOSE HAD BEEN LOWER IN THE PAST)
     Route: 058
  5. WARFARIN [Suspect]
     Active Substance: WARFARIN
     Indication: PRODUCT USED FOR UNKNOWN INDICATION
     Dosage: UNK, UNKNOWN (HIGH DOSES)
     Route: 065

REACTIONS (24)
  - Foot fracture [Unknown]
  - Red blood cell count decreased [Unknown]
  - Fall [Unknown]
  - Muscle spasms [Unknown]
  - Arteriosclerosis [Unknown]
  - Wound complication [Unknown]
  - Gastrointestinal haemorrhage [Unknown]
  - Osteomyelitis [Unknown]
  - Intervertebral disc degeneration [Unknown]
  - Haematoma [Unknown]
  - Poor peripheral circulation [Unknown]
  - Blood glucose increased [Unknown]
  - Back injury [Unknown]
  - Mobility decreased [Unknown]
  - Neuropathy peripheral [Unknown]
  - Infarction [Unknown]
  - Fall [Unknown]
  - Back pain [Unknown]
  - Hypercholesterolaemia [Unknown]
  - Thrombosis [Unknown]
  - Skin ulcer [Unknown]
  - Infected skin ulcer [Unknown]
  - Insulin resistance [Unknown]
  - Glycosylated haemoglobin increased [Unknown]

NARRATIVE: CASE EVENT DATE: 201112
